FAERS Safety Report 7601467-8 (Version None)
Quarter: 2011Q3

REPORT INFORMATION
  Report Type: 
  Country: None (occurrence: None)
  Receive Date: 20110711
  Receipt Date: 20110706
  Transmission Date: 20111222
  Serious: Yes (Other)
  Sender: FDA-Public Use
  Company Number: DE-PFIZER INC-2011151295

PATIENT
  Age: 92 Year
  Sex: Female

DRUGS (2)
  1. LYRICA [Suspect]
     Indication: BACK PAIN
     Dosage: 2 MG, UNK
     Dates: start: 20050101, end: 20110301
  2. LYRICA [Suspect]
     Indication: PROCEDURAL PAIN

REACTIONS (10)
  - SOMNOLENCE [None]
  - MOBILITY DECREASED [None]
  - CONSTIPATION [None]
  - NAUSEA [None]
  - WEIGHT DECREASED [None]
  - ASTHENIA [None]
  - MEMORY IMPAIRMENT [None]
  - PANCREATITIS [None]
  - PHOTOSENSITIVITY REACTION [None]
  - VISION BLURRED [None]
